FAERS Safety Report 24295116 (Version 1)
Quarter: 2024Q3

REPORT INFORMATION
  Report Type: Spontaneous
  Country: GB (occurrence: GB)
  Receive Date: 20240907
  Receipt Date: 20240907
  Transmission Date: 20241016
  Serious: Yes (Other)
  Sender: TEVA
  Company Number: None

PATIENT
  Age: 73 Year
  Sex: Female

DRUGS (26)
  1. WARFARIN [Suspect]
     Active Substance: WARFARIN
     Route: 065
  2. ENOXAPARIN [Suspect]
     Active Substance: ENOXAPARIN
     Route: 065
  3. CEPHALEXIN [Concomitant]
     Active Substance: CEPHALEXIN
  4. BENZALKONIUM CHLORIDE\DIMETHICONE\HYDROCORTISONE\NYSTATIN [Concomitant]
     Active Substance: BENZALKONIUM CHLORIDE\DIMETHICONE\HYDROCORTISONE\NYSTATIN
  5. BECLOMETHASONE DIPROPIONATE\FORMOTEROL FUMARATE\GLYCOPYRROLATE [Concomitant]
     Active Substance: BECLOMETHASONE DIPROPIONATE\FORMOTEROL FUMARATE\GLYCOPYRROLATE
     Dosage: TRIMBOW 87 / 5 / 9 MICROGRAMS / DOSE INHALER
     Route: 055
  6. NITROGLYCERIN [Concomitant]
     Active Substance: NITROGLYCERIN
     Route: 062
  7. LANSOPRAZOLE [Concomitant]
     Active Substance: LANSOPRAZOLE
  8. NEFOPAM [Concomitant]
     Active Substance: NEFOPAM
  9. DICLOFENAC DIETHYLAMINE [Concomitant]
     Active Substance: DICLOFENAC DIETHYLAMINE
  10. MINERAL OIL\PARAFFIN [Concomitant]
     Active Substance: MINERAL OIL\PARAFFIN
     Dosage: EPIMAX ORIGINAL
  11. NEBIVOLOL [Concomitant]
     Active Substance: NEBIVOLOL
  12. ALBUTEROL [Concomitant]
     Active Substance: ALBUTEROL
     Dosage: CFC FREE
     Route: 055
  13. BUMETANIDE [Concomitant]
     Active Substance: BUMETANIDE
  14. PREDNISOLONE [Concomitant]
     Active Substance: PREDNISOLONE
     Dosage: PREDNISOLONE REDUCING COURSE
  15. FOLIC ACID [Concomitant]
     Active Substance: FOLIC ACID
  16. LEVOTHYROXINE [Concomitant]
     Active Substance: LEVOTHYROXINE\LEVOTHYROXINE SODIUM
  17. FAMOTIDINE [Concomitant]
     Active Substance: FAMOTIDINE
  18. IPRATROPIUM [Concomitant]
     Active Substance: IPRATROPIUM
     Dosage: IPRATROPIUM BROMIDE 500 MICROGRAMS / 2 ML NEBULISER LIQUID UNIT DOSE VIALS
     Route: 055
  19. SPIRONOLACTONE [Concomitant]
     Active Substance: SPIRONOLACTONE
  20. TRIMETHOPRIM [Concomitant]
     Active Substance: TRIMETHOPRIM
  21. AMOXICILLIN [Concomitant]
     Active Substance: AMOXICILLIN
  22. CALCIUM CARBONATE\CHOLECALCIFEROL [Concomitant]
     Active Substance: CALCIUM CARBONATE\CHOLECALCIFEROL
     Dosage: TUTTI FRUTTI
     Route: 048
  23. ALBUTEROL [Concomitant]
     Active Substance: ALBUTEROL
     Dosage: SALBUTAMOL 5 MG / 2.5 ML NEBULISER LIQUID UNIT DOSE VIALS
     Route: 055
  24. HYDROXOCOBALAMIN [Concomitant]
     Active Substance: HYDROXOCOBALAMIN
     Dosage: AMPOULES
  25. ACETAMINOPHEN [Concomitant]
     Active Substance: ACETAMINOPHEN
  26. NITROGLYCERIN [Concomitant]
     Active Substance: NITROGLYCERIN
     Route: 060

REACTIONS (1)
  - Superficial vein thrombosis [Recovered/Resolved]

NARRATIVE: CASE EVENT DATE: 20240603
